FAERS Safety Report 6913191-5 (Version None)
Quarter: 2010Q3

REPORT INFORMATION
  Report Type: 
  Country: None (occurrence: None)
  Receive Date: 20100808
  Receipt Date: 20100803
  Transmission Date: 20110219
  Serious: Yes (Hospitalization)
  Sender: FDA-Public Use
  Company Number: FR-BRISTOL-MYERS SQUIBB COMPANY-15224785

PATIENT
  Age: 58 Year
  Sex: Female

DRUGS (2)
  1. APROVEL TABS [Suspect]
     Dates: end: 20100420
  2. LASIX [Suspect]
     Route: 048
     Dates: end: 20100420

REACTIONS (4)
  - DECREASED APPETITE [None]
  - NAUSEA [None]
  - RENAL FAILURE [None]
  - VOMITING [None]
